FAERS Safety Report 5674859-4 (Version None)
Quarter: 2008Q1

REPORT INFORMATION
  Report Type: 
  Country: None (occurrence: None)
  Receive Date: 20080319
  Receipt Date: 20080319
  Transmission Date: 20080703
  Serious: Yes (Hospitalization)
  Sender: FDA-Public Use
  Company Number: None

PATIENT
  Age: 51 Year
  Sex: Male
  Weight: 70.3075 kg

DRUGS (1)
  1. RIFAMPIN [Suspect]
     Indication: LEGIONELLA INFECTION
     Dosage: 300 MG TWICE DAILY PO
     Route: 048
     Dates: start: 20080311, end: 20080312

REACTIONS (2)
  - DIARRHOEA [None]
  - VOMITING [None]
